FAERS Safety Report 13659564 (Version 1)
Quarter: 2017Q2

REPORT INFORMATION
  Report Type: Spontaneous
  Country: US (occurrence: US)
  Receive Date: 20170616
  Receipt Date: 20170616
  Transmission Date: 20170830
  Serious: Yes (Hospitalization)
  Sender: FDA-Public Use
  Company Number: None

PATIENT
  Age: 55 Year
  Sex: Male
  Weight: 67.2 kg

DRUGS (11)
  1. ROXICODONE [Concomitant]
     Active Substance: OXYCODONE HYDROCHLORIDE
  2. WARFARIN [Suspect]
     Active Substance: WARFARIN
     Indication: MEDICAL PROCEDURE
     Dosage: 5MG Q TTHSAT PO ?DATE OF USE CHRONIC
     Route: 048
  3. MVI [Concomitant]
     Active Substance: VITAMINS
  4. WARFARIN [Suspect]
     Active Substance: WARFARIN
     Indication: MEDICAL PROCEDURE
     Dosage: 2.5MG Q MWFSUN PO?DATE OF USE CHRONIC
     Route: 048
  5. MAG OX [Concomitant]
     Active Substance: MAGNESIUM OXIDE
  6. OMEGA 3 [Concomitant]
     Active Substance: OMEGA-3 FATTY ACIDS
  7. FENOFIBRATE. [Concomitant]
     Active Substance: FENOFIBRATE
  8. LASIX [Concomitant]
     Active Substance: FUROSEMIDE
  9. ZOFRAN ODT [Concomitant]
     Active Substance: ONDANSETRON HYDROCHLORIDE
  10. NICODERM CQ [Concomitant]
     Active Substance: NICOTINE
  11. INDER [Concomitant]

REACTIONS (3)
  - Coagulopathy [None]
  - International normalised ratio increased [None]
  - Haematochezia [None]

NARRATIVE: CASE EVENT DATE: 20160414
